FAERS Safety Report 8249941-8 (Version None)
Quarter: 2012Q2

REPORT INFORMATION
  Report Type: 
  Country: None (occurrence: None)
  Receive Date: 20120402
  Receipt Date: 20120322
  Transmission Date: 20120825
  Serious: Yes (Hospitalization)
  Sender: FDA-Public Use
  Company Number: US-GENZYME-CART-1000080

PATIENT

DRUGS (1)
  1. CARTICEL [Suspect]
     Indication: CARTILAGE INJURY
     Dosage: UNK
     Route: 014
     Dates: start: 20120110, end: 20120110

REACTIONS (4)
  - JOINT EFFUSION [None]
  - INFECTION [None]
  - STAPHYLOCOCCAL INFECTION [None]
  - JOINT SWELLING [None]
